FAERS Safety Report 5367964-3 (Version None)
Quarter: 2007Q2

REPORT INFORMATION
  Report Type: 
  Country: None (occurrence: None)
  Receive Date: 20070622
  Receipt Date: 20070612
  Transmission Date: 20071010
  Serious: Yes (Hospitalization, Other)
  Sender: FDA-Public Use
  Company Number: JP-PFIZER INC-2007042105

PATIENT
  Age: 35 Year
  Sex: Male

DRUGS (6)
  1. ZOLOFT [Suspect]
     Indication: BIPOLAR I DISORDER
     Route: 048
     Dates: start: 20070426, end: 20070528
  2. ZOLOFT [Suspect]
     Indication: DEPRESSION
  3. LIMAS [Concomitant]
     Route: 048
  4. PAXIL [Concomitant]
     Indication: BIPOLAR I DISORDER
     Route: 048
  5. NITRAZEPAM [Concomitant]
     Route: 048
  6. BROTIZOLAM [Concomitant]
     Route: 048

REACTIONS (1)
  - SUICIDAL IDEATION [None]
